FAERS Safety Report 18863729 (Version 2)
Quarter: 2021Q1

REPORT INFORMATION
  Report Type: Report from Study
  Country: NO (occurrence: NO)
  Receive Date: 20210208
  Receipt Date: 20210301
  Transmission Date: 20210420
  Serious: Yes (Hospitalization)
  Sender: FDA-Public Use
  Company Number: NO-BRISTOL-MYERS SQUIBB COMPANY-BMS-2021-010193

PATIENT
  Age: 78 Year
  Sex: Male

DRUGS (1)
  1. NIVOLUMAB [Suspect]
     Active Substance: NIVOLUMAB
     Indication: HEAD AND NECK CANCER
     Dosage: 3 MILLIGRAM/KILOGRAM, Q2WK
     Route: 042
     Dates: start: 20210105, end: 20210119

REACTIONS (4)
  - Dehydration [Unknown]
  - Weight decreased [Unknown]
  - Dysphagia [Unknown]
  - Malnutrition [Unknown]

NARRATIVE: CASE EVENT DATE: 20210201
